FAERS Safety Report 4925314-8 (Version None)
Quarter: 2006Q1

REPORT INFORMATION
  Report Type: 
  Country: None (occurrence: None)
  Receive Date: 20060224
  Receipt Date: 20060224
  Transmission Date: 20060701
  Serious: Yes (Hospitalization, Other)
  Sender: FDA-Public Use
  Company Number: None

PATIENT
  Age: 57 Year
  Sex: Female
  Weight: 90.7194 kg

DRUGS (1)
  1. VANCOMYCIN [Suspect]
     Indication: LYME DISEASE
     Dosage: 500 MG -I THINK - I HAD 2 DIFFE 1 PER DAY IV DRIP
     Route: 041
     Dates: start: 20041231, end: 20050202

REACTIONS (4)
  - CONSTIPATION [None]
  - HAEMORRHAGE [None]
  - INTESTINAL OBSTRUCTION [None]
  - VOLUME BLOOD DECREASED [None]
